FAERS Safety Report 19272332 (Version 1)
Quarter: 2021Q2

REPORT INFORMATION
  Report Type: Spontaneous
  Country: NL (occurrence: FR)
  Receive Date: 20210518
  Receipt Date: 20210518
  Transmission Date: 20210717
  Serious: Yes (Other)
  Sender: FDA-Public Use
  Company Number: FR-FRESENIUS KABI-FK202105008

PATIENT
  Age: 87 Year
  Sex: Male

DRUGS (3)
  1. CLINDAMYCIN. [Suspect]
     Active Substance: CLINDAMYCIN
     Indication: CELLULITIS
     Route: 041
     Dates: start: 20210320, end: 20210325
  2. TAZOBACTAM [Suspect]
     Active Substance: TAZOBACTAM
     Indication: CELLULITIS
     Route: 041
     Dates: start: 20210320, end: 20210325
  3. PIPERACILLIN. [Suspect]
     Active Substance: PIPERACILLIN SODIUM
     Indication: CELLULITIS
     Route: 041
     Dates: start: 20210320, end: 20210325

REACTIONS (1)
  - Acute kidney injury [Recovered/Resolved]

NARRATIVE: CASE EVENT DATE: 20210325
